FAERS Safety Report 10174433 (Version 2)
Quarter: 2014Q2

REPORT INFORMATION
  Report Type: Spontaneous
  Country: FR (occurrence: FR)
  Receive Date: 20140515
  Receipt Date: 20140515
  Transmission Date: 20141212
  Serious: Yes (Other)
  Sender: FDA-Public Use
  Company Number: FR-ASTRAZENECA-2014SE07673

PATIENT
  Age: 19798 Day
  Sex: Female

DRUGS (14)
  1. INEXIUM [Suspect]
     Route: 048
     Dates: start: 20131128, end: 20140103
  2. HEPARINE CHOAY [Suspect]
     Indication: PULMONARY EMBOLISM
     Route: 042
     Dates: start: 20131129, end: 20140103
  3. TIORFAN [Concomitant]
     Indication: DIARRHOEA
     Route: 048
     Dates: start: 20131226, end: 20131226
  4. PARACETAMOL [Concomitant]
     Dosage: 500 MG 3 TIMES A DAY IF NEEDED
     Route: 048
     Dates: start: 201312, end: 20131229
  5. LEXOMIL ROCHE [Concomitant]
     Route: 048
     Dates: start: 20131210
  6. DEROXAT [Concomitant]
     Route: 048
     Dates: start: 20131222
  7. CETORNAN [Concomitant]
     Route: 048
     Dates: start: 20131222, end: 20140112
  8. OXYNORMO [Concomitant]
     Route: 048
     Dates: start: 20131224, end: 20140105
  9. SUFENTANIL MYLAN [Concomitant]
     Route: 042
     Dates: start: 20131226, end: 20131226
  10. ATRACURIUM HOSPIRA [Concomitant]
     Route: 042
     Dates: start: 20131226, end: 20131226
  11. LOVENOX [Concomitant]
     Dates: start: 20131127
  12. TAZOCILLINE [Concomitant]
     Dates: start: 20131204, end: 20131215
  13. GENTAMICINE [Concomitant]
     Dates: start: 20131204, end: 20131215
  14. ZYVOXID [Concomitant]
     Dates: start: 20131204, end: 20131215

REACTIONS (3)
  - Cytomegalovirus oesophagitis [Unknown]
  - Rash erythematous [Recovered/Resolved]
  - Rash maculo-papular [Recovered/Resolved]
